FAERS Safety Report 5595521-2 (Version None)
Quarter: 2008Q1

REPORT INFORMATION
  Report Type: 
  Country: None (occurrence: None)
  Receive Date: 20080118
  Receipt Date: 20080111
  Transmission Date: 20080703
  Serious: Yes (Hospitalization)
  Sender: FDA-Public Use
  Company Number: US-JNJFOC-20080103156

PATIENT
  Age: 88 Year
  Sex: Female
  Weight: 68.04 kg

DRUGS (5)
  1. ULTRAM [Suspect]
     Indication: PAIN
     Dosage: 4-6 IN 24 HOUR
     Route: 048
  2. CHOLESTEROL MEDICATION [Concomitant]
     Indication: BLOOD CHOLESTEROL
     Route: 065
  3. BLOOD PRESSURE MEDICINES [Concomitant]
     Indication: HYPERTENSION
     Route: 065
  4. DURAGESIC-100 [Concomitant]
     Route: 062
  5. DURAGESIC-100 [Concomitant]
     Indication: ARTHRALGIA
     Route: 062

REACTIONS (3)
  - DRUG DOSE OMISSION [None]
  - FALL [None]
  - WITHDRAWAL SYNDROME [None]
